FAERS Safety Report 6354761-5 (Version None)
Quarter: 2009Q3

REPORT INFORMATION
  Report Type: 
  Country: None (occurrence: None)
  Receive Date: 20090914
  Receipt Date: 20090901
  Transmission Date: 20100115
  Serious: Yes (Life-Threatening, Hospitalization)
  Sender: FDA-Public Use
  Company Number: FR-ELI_LILLY_AND_COMPANY-FR200909000756

PATIENT
  Age: 63 Year
  Sex: Male

DRUGS (9)
  1. BYETTA [Suspect]
     Indication: INSULIN-REQUIRING TYPE 2 DIABETES MELLITUS
     Dosage: 5 UG, 2/D
     Route: 058
     Dates: start: 20090701, end: 20090801
  2. BYETTA [Suspect]
     Dosage: 10 UG, 2/D
     Route: 058
     Dates: start: 20090806
  3. ANTIHYPERTENSIVES [Concomitant]
     Indication: HYPERTENSION
     Dosage: UNK, UNKNOWN
     Route: 065
  4. STAGID [Concomitant]
     Indication: DIABETES MELLITUS
     Dosage: UNK, UNKNOWN
     Route: 048
  5. KARDEGIC [Concomitant]
     Dosage: UNK, UNKNOWN
     Route: 065
  6. RAMIPRIL [Concomitant]
     Dosage: UNK, UNKNOWN
     Route: 065
  7. NICARDIPINE HCL [Concomitant]
     Dosage: UNK, UNKNOWN
     Route: 065
  8. EUPRESSYL [Concomitant]
     Dosage: UNK, UNKNOWN
     Route: 065
  9. ZOLPIDEM [Concomitant]
     Dosage: UNK, UNKNOWN
     Route: 065

REACTIONS (1)
  - COLITIS ISCHAEMIC [None]
